FAERS Safety Report 9057679 (Version 3)
Quarter: 2013Q3

REPORT INFORMATION
  Report Type: Spontaneous
  Country: CN (occurrence: None)
  Receive Date: 20130117
  Receipt Date: 20130814
  Transmission Date: 20140515
  Serious: Yes (Hospitalization)
  Sender: FDA-Public Use
  Company Number: DSA_61894_2013

PATIENT
  Age: 64 Year
  Sex: Female

DRUGS (7)
  1. 5FU [Suspect]
     Indication: COLORECTAL CANCER METASTATIC
     Route: 040
     Dates: start: 20121205, end: 20121205
  2. BLINDED THERAPY (OTHER THERAPEUTIC PRODUCTS) [Suspect]
     Indication: COLORECTAL CANCER METASTATIC
     Dosage: (NOT OTHERWISE SPECIFIED))
     Route: 042
     Dates: start: 20121205, end: 20121205
  3. IRINOTECAN [Suspect]
     Indication: COLORECTAL CANCER METASTATIC
     Dosage: (NOT OTHERWISE SPECIFIED))
     Route: 042
     Dates: start: 20121205, end: 20121205
  4. LEUCOVORIN (FOLINIC ACID) (SOLUTION FOR INFUSION) (FOLINIC ACID) [Suspect]
     Indication: COLORECTAL CANCER METASTATIC
     Dosage: (NOT OTHERWISE SPECIFIED))
     Route: 042
     Dates: start: 20121205
  5. ATROPINE [Concomitant]
  6. PALONOSETRON [Concomitant]
  7. GLUTATHIONE [Concomitant]

REACTIONS (2)
  - Diarrhoea [None]
  - Vomiting [None]
